FAERS Safety Report 7234943-0 (Version None)
Quarter: 2011Q1

REPORT INFORMATION
  Report Type: 
  Country: None (occurrence: None)
  Receive Date: 20110120
  Receipt Date: 20110117
  Transmission Date: 20110831
  Serious: Yes (Life-Threatening, Hospitalization, Other)
  Sender: FDA-Public Use
  Company Number: PHFR2010GB05661

PATIENT
  Sex: Male

DRUGS (8)
  1. LITHIUM CARBONATE [Concomitant]
     Dosage: 800 MG, UNK
     Route: 048
     Dates: start: 20080130, end: 20101127
  2. LORAZEPAM [Concomitant]
     Dosage: UNK
  3. NICORETTE [Concomitant]
     Dosage: UNK
  4. CLOZARIL [Suspect]
     Dosage: UNK
     Route: 048
  5. LEVOTHYROXINE [Concomitant]
     Dosage: 125 UG, UNK
  6. ARIPIPRAZOLE [Concomitant]
     Dosage: 15 MG, UNK
     Route: 048
     Dates: start: 20100420, end: 20101127
  7. VALPROATE SODIUM [Concomitant]
     Dosage: 1500 MG, UNK
     Route: 048
  8. CLOZARIL [Suspect]
     Indication: SCHIZOPHRENIA
     Dosage: 450 MG
     Route: 048
     Dates: start: 20101013, end: 20101101

REACTIONS (20)
  - MITRAL VALVE INCOMPETENCE [None]
  - TRICUSPID VALVE INCOMPETENCE [None]
  - BIFASCICULAR BLOCK [None]
  - BUNDLE BRANCH BLOCK RIGHT [None]
  - MYOCARDITIS [None]
  - CHEST PAIN [None]
  - MALAISE [None]
  - CHEST X-RAY ABNORMAL [None]
  - NEUTROPHIL COUNT DECREASED [None]
  - CARDIOMEGALY [None]
  - BUNDLE BRANCH BLOCK LEFT [None]
  - TROPONIN INCREASED [None]
  - LEFT VENTRICULAR HYPERTROPHY [None]
  - QRS AXIS ABNORMAL [None]
  - ARRHYTHMIA [None]
  - HYPOXIA [None]
  - CARDIAC ARREST [None]
  - PRODUCTIVE COUGH [None]
  - PNEUMONIA [None]
  - PYREXIA [None]
